FAERS Safety Report 18659986 (Version 2)
Quarter: 2021Q1

REPORT INFORMATION
  Report Type: Report from Study
  Country: CN (occurrence: CN)
  Receive Date: 20201224
  Receipt Date: 20210107
  Transmission Date: 20210419
  Serious: Yes (Hospitalization, Other)
  Sender: FDA-Public Use
  Company Number: CN-ASTRAZENECA-2020SF71877

PATIENT
  Age: 20793 Day
  Sex: Male
  Weight: 66.2 kg

DRUGS (1)
  1. TAGRISSO [Suspect]
     Active Substance: OSIMERTINIB
     Indication: NON-SMALL CELL LUNG CANCER
     Route: 048
     Dates: start: 20200301

REACTIONS (3)
  - Malignant neoplasm progression [Not Recovered/Not Resolved]
  - Drug resistance [Unknown]
  - Skin odour abnormal [Unknown]

NARRATIVE: CASE EVENT DATE: 20201209
